FAERS Safety Report 5236182-1 (Version None)
Quarter: 2007Q1

REPORT INFORMATION
  Report Type: 
  Country: None (occurrence: None)
  Receive Date: 20061208
  Receipt Date: 20060120
  Transmission Date: 20070707
  Serious: Yes (Other)
  Sender: FDA-Public Use
  Company Number: 2006UW01071

PATIENT
  Age: 66 Year
  Sex: Female
  Weight: 49.895 kg

DRUGS (6)
  1. CRESTOR [Suspect]
     Indication: BLOOD CHOLESTEROL INCREASED
     Dosage: 10 MG PO
     Route: 048
  2. ASPIRIN [Concomitant]
  3. FISH OIL [Concomitant]
  4. VITAMIN E [Concomitant]
  5. VITAMIN B COMPLEX CAP [Concomitant]
  6. CALCIUM [Concomitant]

REACTIONS (1)
  - HIGH DENSITY LIPOPROTEIN DECREASED [None]
